FAERS Safety Report 5052037-X (Version None)
Quarter: 2006Q3

REPORT INFORMATION
  Report Type: 
  Country: None (occurrence: None)
  Receive Date: 20060711
  Receipt Date: 20060627
  Transmission Date: 20061208
  Serious: Yes (Death, Hospitalization)
  Sender: FDA-Public Use
  Company Number: S06-CAN-01345-01

PATIENT
  Age: 26 Year
  Sex: Male
  Weight: 63.5036 kg

DRUGS (5)
  1. CELEXA [Suspect]
     Dosage: 40 MG QD, PO
     Route: 048
  2. CELEXA [Suspect]
  3. VENLAFAXINE HCL [Concomitant]
  4. CLONAZEPAM [Concomitant]
  5. OLANZAPINE [Concomitant]

REACTIONS (3)
  - COMPLETED SUICIDE [None]
  - INJURY ASPHYXIATION [None]
  - SUICIDAL IDEATION [None]
